FAERS Safety Report 23430717 (Version 1)
Quarter: 2024Q1

REPORT INFORMATION
  Report Type: Spontaneous
  Country: GB (occurrence: GB)
  Receive Date: 20240123
  Receipt Date: 20240123
  Transmission Date: 20240410
  Serious: Yes (Other)
  Sender: FDA-Public Use
  Company Number: GB-MHRA-MED-202401131203350840-TPGNW

PATIENT
  Age: 75 Year
  Sex: Male

DRUGS (1)
  1. BISOPROLOL [Suspect]
     Active Substance: BISOPROLOL\BISOPROLOL FUMARATE
     Indication: Adverse drug reaction
     Dosage: 2.5 MILLIGRAM, ONCE A DAY
     Route: 065

REACTIONS (1)
  - Rhinorrhoea [Not Recovered/Not Resolved]
